FAERS Safety Report 8621729-5 (Version None)
Quarter: 2012Q3

REPORT INFORMATION
  Report Type: 
  Country: None (occurrence: None)
  Receive Date: 20120821
  Receipt Date: 20120821
  Transmission Date: 20120928
  Serious: Yes (Hospitalization)
  Sender: FDA-Public Use
  Company Number: None

PATIENT
  Age: 63 Year
  Sex: Male
  Weight: 91.2 kg

DRUGS (3)
  1. LISINOPRIL AND HYDROCHLOROTHIAZIDE [Suspect]
     Indication: HYPERTENSION
     Dosage: 12.5/20 MG EVERY DAY PO
     Route: 048
     Dates: start: 20110309
  2. CLONIDINE [Suspect]
     Indication: DRUG WITHDRAWAL SYNDROME
     Dosage: 0.1 MG BID PO
     Route: 048
     Dates: start: 20120608
  3. CLONIDINE [Suspect]
     Indication: HYPERTENSION
     Dosage: 0.1 MG BID PO
     Route: 048
     Dates: start: 20120608

REACTIONS (6)
  - URINARY RETENTION [None]
  - DIZZINESS [None]
  - HYPONATRAEMIA [None]
  - HYPOKALAEMIA [None]
  - HEADACHE [None]
  - HYPOTENSION [None]
